FAERS Safety Report 8698871 (Version 2)
Quarter: 2012Q4

REPORT INFORMATION
  Report Type: 
  Country: US (occurrence: US)
  Receive Date: 20120802
  Receipt Date: 20120918
  Transmission Date: 20130627
  Serious: Yes (Disabling, Other)
  Sender: FDA-Public Use
  Company Number: US-PFIZER INC-2012186109

PATIENT
  Age: 34 Year
  Sex: Female
  Weight: 55.78 kg

DRUGS (3)
  1. LYRICA [Suspect]
     Indication: DIABETIC NEUROPATHY
     Dosage: 75 mg, 2x/day
     Dates: start: 2002
  2. LANTUS [Concomitant]
     Indication: TYPE 1 DIABETES MELLITUS
     Dosage: 25 IU, 2x/day
  3. HUMALOG [Concomitant]
     Indication: TYPE 1 DIABETES MELLITUS
     Dosage: 10 IU, daily

REACTIONS (3)
  - Blindness [Not Recovered/Not Resolved]
  - Glaucoma [Unknown]
  - Diabetic retinopathy [Unknown]
